FAERS Safety Report 9168978 (Version 1)
Quarter: 2013Q1

REPORT INFORMATION
  Report Type: Spontaneous
  Country: US (occurrence: None)
  Receive Date: 20130308
  Receipt Date: 20130308
  Transmission Date: 20140127
  Serious: Yes (Hospitalization)
  Sender: FDA-Public Use
  Company Number: 2013-055

PATIENT
  Age: 55 Year
  Sex: Male

DRUGS (6)
  1. PRIALT (ZICONOTIDE) INTRATHECAL INFUSION [Suspect]
     Indication: MONONEURITIS
     Route: 037
     Dates: start: 201206
  2. PRIALT (ZICONOTIDE) INTRATHECAL INFUSION [Suspect]
     Indication: SCIATICA
     Route: 037
     Dates: start: 201206
  3. PRIALT (ZICONOTIDE) INTRATHECAL INFUSION [Suspect]
     Indication: NERVE INJURY
     Route: 037
     Dates: start: 201206
  4. PRIALT (ZICONOTIDE) INTRATHECAL INFUSION [Suspect]
     Indication: PAIN
     Route: 037
     Dates: start: 201206
  5. PERCOCET [Concomitant]
  6. MORPHINE SULFATE (MORPHINE SULFATE [Concomitant]

REACTIONS (4)
  - Dyspnoea [None]
  - Hyperhidrosis [None]
  - Dizziness [None]
  - Hypoaesthesia [None]
